FAERS Safety Report 12978686 (Version 2)
Quarter: 2017Q1

REPORT INFORMATION
  Report Type: Spontaneous
  Country: US (occurrence: US)
  Receive Date: 20161128
  Receipt Date: 20170103
  Transmission Date: 20170428
  Serious: No
  Sender: FDA-Public Use
  Company Number: US-PFIZER INC-2016551253

PATIENT
  Age: 67 Year
  Sex: Female

DRUGS (16)
  1. VITAMIN D2 [Concomitant]
     Active Substance: ERGOCALCIFEROL
     Dosage: 50000 IU, WEEKLY (1 Q WEEK)
  2. TIZANIDINE. [Concomitant]
     Active Substance: TIZANIDINE
     Dosage: 4 MG, AS NEEDED (1 Q 4-8 HRS)
  3. TYLENOL [Concomitant]
     Active Substance: ACETAMINOPHEN
     Dosage: 500 MG, AS NEEDED (1-2 PRN)
  4. PROTONIX [Concomitant]
     Active Substance: PANTOPRAZOLE SODIUM
     Dosage: 40 MG, DAILY
  5. ZOLPIDEM TARTRATE. [Concomitant]
     Active Substance: ZOLPIDEM TARTRATE
     Dosage: 10 MG, 1X/DAY (BEDTIME)
  6. LEVOTHYROXINE SODIUM. [Concomitant]
     Active Substance: LEVOTHYROXINE SODIUM
     Dosage: 100 UG, DAILY
  7. PRISTIQ EXTENDED-RELEASE [Suspect]
     Active Substance: DESVENLAFAXINE SUCCINATE
     Dosage: 50 MG, DAILY
  8. METOPROLOL TARTRATE. [Concomitant]
     Active Substance: METOPROLOL TARTRATE
     Dosage: 100 MG, 2X/DAY
  9. SIMVASTIN [Concomitant]
     Active Substance: SIMVASTATIN
     Dosage: 20 MG, 1X/DAY (BEDTIME)
  10. ATIVAN [Concomitant]
     Active Substance: LORAZEPAM
     Dosage: 2 MG, 2X/DAY
  11. LISINOPRIL. [Concomitant]
     Active Substance: LISINOPRIL
     Dosage: 20 MG, DAILY
  12. PRISTIQ EXTENDED-RELEASE [Suspect]
     Active Substance: DESVENLAFAXINE SUCCINATE
     Indication: ANXIETY
     Dosage: 50 MG, 2X/DAY
     Dates: start: 2012
  13. MULTAQ [Concomitant]
     Active Substance: DRONEDARONE
     Dosage: 400 MG, 2X/DAY
  14. PRADAXA [Concomitant]
     Active Substance: DABIGATRAN ETEXILATE MESYLATE
     Dosage: 150 MG, 2X/DAY
  15. ASPIRIN. [Concomitant]
     Active Substance: ASPIRIN
     Dosage: 325 MG, DAILY
  16. HCTZ [Concomitant]
     Active Substance: HYDROCHLOROTHIAZIDE
     Dosage: 25 MG, DAILY

REACTIONS (1)
  - Nasopharyngitis [Recovered/Resolved]
